FAERS Safety Report 9773104 (Version 4)
Quarter: 2014Q2

REPORT INFORMATION
  Report Type: Report from Study
  Country: JP (occurrence: JP)
  Receive Date: 20131219
  Receipt Date: 20140630
  Transmission Date: 20141212
  Serious: Yes (Death, Life-Threatening)
  Sender: FDA-Public Use
  Company Number: JP-SA-2013SA131249

PATIENT
  Age: 55 Year
  Sex: Male
  Weight: 67.15 kg

DRUGS (9)
  1. THYMOGLOBULINE [Suspect]
     Indication: BONE MARROW CONDITIONING REGIMEN
     Route: 042
     Dates: start: 20120801, end: 20120802
  2. FUNGUARD [Concomitant]
     Indication: INFECTION
     Dates: start: 20120729, end: 20120817
  3. TEICOPLANIN [Concomitant]
     Indication: INFECTION
     Dates: start: 20120727, end: 20120815
  4. MAXIPIME [Concomitant]
     Indication: INFECTION
     Dates: start: 20120720, end: 20120812
  5. SOL-MELCORT [Concomitant]
     Indication: PROPHYLAXIS
     Dates: start: 20120801, end: 20120815
  6. PROGRAF [Concomitant]
     Indication: PROPHYLAXIS AGAINST GRAFT VERSUS HOST DISEASE
     Dates: start: 20120801, end: 20121017
  7. ELECTROLYTE SOLUTIONS [Concomitant]
     Indication: HYPOPHAGIA
     Dates: start: 20120803, end: 20120811
  8. BAKTAR [Concomitant]
     Indication: INFECTION
     Dates: end: 20120814
  9. URSO [Concomitant]
     Indication: PROPHYLAXIS
     Dates: start: 20120726, end: 20120814

REACTIONS (4)
  - Hepatic vein occlusion [Fatal]
  - Aspergillus infection [Fatal]
  - Stenotrophomonas infection [Not Recovered/Not Resolved]
  - Pseudomonas infection [Not Recovered/Not Resolved]
